FAERS Safety Report 10150075 (Version 1)
Quarter: 2014Q2

REPORT INFORMATION
  Report Type: Spontaneous
  Country: GB (occurrence: GB)
  Receive Date: 20140502
  Receipt Date: 20140502
  Transmission Date: 20141212
  Serious: Yes (Other)
  Sender: FDA-Public Use
  Company Number: GB-WATSON-2014-08669

PATIENT
  Age: 57 Year
  Sex: Male
  Weight: 105 kg

DRUGS (4)
  1. SIMVASTATIN (UNKNOWN) [Suspect]
     Indication: BLOOD CHOLESTEROL INCREASED
     Dosage: 40 MG, UNKNOWN
     Route: 048
     Dates: start: 20130902, end: 20140326
  2. FELODIPINE [Concomitant]
     Indication: PRODUCT USED FOR UNKNOWN INDICATION
     Dosage: UNKNOWN
     Route: 065
  3. RAMIPRIL [Concomitant]
     Indication: PRODUCT USED FOR UNKNOWN INDICATION
     Dosage: UNKNOWN
     Route: 065
  4. TAMSULOSIN HYDROCHLORIDE [Concomitant]
     Indication: PRODUCT USED FOR UNKNOWN INDICATION
     Dosage: UNKNOWN
     Route: 065

REACTIONS (1)
  - Arthralgia [Recovering/Resolving]
